FAERS Safety Report 18465633 (Version 2)
Quarter: 2020Q4

REPORT INFORMATION
  Report Type: Report from Study
  Country: US (occurrence: US)
  Receive Date: 20201105
  Receipt Date: 20201125
  Transmission Date: 20210114
  Serious: Yes (Hospitalization)
  Sender: FDA-Public Use
  Company Number: US-GILEAD-2020-0502868

PATIENT
  Age: 16 Year
  Sex: Male

DRUGS (17)
  1. ADCIRCA [Concomitant]
     Active Substance: TADALAFIL
  2. DAPSONE. [Concomitant]
     Active Substance: DAPSONE
  3. LEXAPRO [Concomitant]
     Active Substance: ESCITALOPRAM OXALATE
  4. LOTEMAX [Concomitant]
     Active Substance: LOTEPREDNOL ETABONATE
  5. EPINASTINE. [Concomitant]
     Active Substance: EPINASTINE HYDROCHLORIDE
  6. LORATADINE. [Concomitant]
     Active Substance: LORATADINE
  7. TACROLIMUS. [Concomitant]
     Active Substance: TACROLIMUS
  8. ADVAIR HFA [Concomitant]
     Active Substance: FLUTICASONE PROPIONATE\SALMETEROL XINAFOATE
  9. AMBRISENTAN [Suspect]
     Active Substance: AMBRISENTAN
     Indication: PULMONARY ARTERIAL HYPERTENSION
     Dosage: 10 MG, QD
     Route: 065
     Dates: start: 20160205
  10. ASPIRIN. [Concomitant]
     Active Substance: ASPIRIN
  11. CYPROHEPTADIN [Concomitant]
     Active Substance: CYPROHEPTADINE HYDROCHLORIDE
  12. LASIX [Concomitant]
     Active Substance: FUROSEMIDE
  13. REMODULIN [Concomitant]
     Active Substance: TREPROSTINIL
  14. MULTIVITAMIN [Concomitant]
     Active Substance: VITAMINS
  15. SPIRONOLACTON [Concomitant]
     Active Substance: SPIRONOLACTONE
  16. DRONABINOL. [Concomitant]
     Active Substance: DRONABINOL
  17. FISH OIL [Concomitant]
     Active Substance: FISH OIL

REACTIONS (3)
  - Cardiac disorder [Unknown]
  - Off label use [Unknown]
  - Lung disorder [Not Recovered/Not Resolved]
